FAERS Safety Report 9417666 (Version 1)
Quarter: 2013Q3

REPORT INFORMATION
  Report Type: Spontaneous
  Country: US (occurrence: None)
  Receive Date: 20130722
  Receipt Date: 20130722
  Transmission Date: 20140515
  Serious: Yes (Life-Threatening)
  Sender: FDA-Public Use
  Company Number: None

PATIENT
  Sex: 0

DRUGS (1)
  1. OMEPRAZOLE [Suspect]
     Indication: DYSPEPSIA
     Route: 048
     Dates: start: 20130427, end: 20130427

REACTIONS (7)
  - Hot flush [None]
  - Pruritus [None]
  - Cold sweat [None]
  - Skin discolouration [None]
  - Product quality issue [None]
  - Product substitution issue [None]
  - Altered state of consciousness [None]
